FAERS Safety Report 15552530 (Version 1)
Quarter: 2018Q4

REPORT INFORMATION
  Report Type: Spontaneous
  Country: CA (occurrence: CA)
  Receive Date: 20181025
  Receipt Date: 20181025
  Transmission Date: 20190205
  Serious: Yes (Other)
  Sender: FDA-Public Use
  Company Number: CA-PFIZER INC-2018435276

PATIENT
  Age: 58 Year
  Sex: Female

DRUGS (12)
  1. SANDOSTATIN [Suspect]
     Active Substance: OCTREOTIDE ACETATE
     Dosage: 30 MG, MONTHLY
     Route: 030
  2. METFORMIN HYDROCHLORIDE/SAXAGLIPTIN HYDROCHLORIDE [Concomitant]
     Dosage: 2.5 MG, BID
     Route: 065
  3. SYNTHROID [Concomitant]
     Active Substance: LEVOTHYROXINE SODIUM
     Dosage: 0.025 MG, QD
     Route: 048
  4. SANDOSTATIN [Suspect]
     Active Substance: OCTREOTIDE ACETATE
     Dosage: 30 MG, MONTHLY
     Route: 030
  5. PANTOPRAZOLE [Suspect]
     Active Substance: PANTOPRAZOLE
     Dosage: UNK
     Route: 065
  6. OXYCODONE HYDROCHLORIDE. [Suspect]
     Active Substance: OXYCODONE HYDROCHLORIDE
     Dosage: UNK
     Route: 065
  7. SANDOSTATIN [Suspect]
     Active Substance: OCTREOTIDE ACETATE
     Indication: CARCINOID TUMOUR
     Dosage: 20 MG, MONTHLY
     Route: 030
  8. APO-GLICLAZIDE [Concomitant]
     Active Substance: GLICLAZIDE
     Dosage: 60 MG, UNK
     Route: 065
  9. FOSINOPRIL SODIUM. [Concomitant]
     Active Substance: FOSINOPRIL SODIUM
     Dosage: 20 MG, QD
     Route: 048
  10. AMLODIPINE BESILATE [Suspect]
     Active Substance: AMLODIPINE BESYLATE
     Dosage: 5 MG, QD
     Route: 048
  11. AFINITOR [Suspect]
     Active Substance: EVEROLIMUS
     Dosage: 10 MG, QD
     Route: 048
  12. SANDOSTATIN [Suspect]
     Active Substance: OCTREOTIDE ACETATE
     Indication: CARCINOID TUMOUR
     Dosage: UNK
     Route: 058

REACTIONS (38)
  - Constipation [Recovering/Resolving]
  - Drug hypersensitivity [Recovering/Resolving]
  - Hot flush [Recovering/Resolving]
  - Influenza like illness [Recovering/Resolving]
  - Abdominal distension [Recovering/Resolving]
  - Body temperature decreased [Recovering/Resolving]
  - Dry mouth [Recovering/Resolving]
  - Frequent bowel movements [Recovering/Resolving]
  - Hypotension [Recovering/Resolving]
  - Nasal congestion [Recovering/Resolving]
  - Somnolence [Recovering/Resolving]
  - Blood pressure increased [Recovering/Resolving]
  - Flushing [Recovering/Resolving]
  - Headache [Recovering/Resolving]
  - Influenza [Recovering/Resolving]
  - Psoriasis [Recovering/Resolving]
  - Abdominal pain [Recovering/Resolving]
  - Back pain [Recovering/Resolving]
  - Dizziness [Recovering/Resolving]
  - Dry skin [Recovering/Resolving]
  - Fatigue [Recovering/Resolving]
  - Hyperglycaemia [Recovering/Resolving]
  - Muscular weakness [Recovering/Resolving]
  - Musculoskeletal pain [Recovering/Resolving]
  - Vomiting [Recovering/Resolving]
  - Flatulence [Recovering/Resolving]
  - Malignant neoplasm progression [Recovering/Resolving]
  - Oedema peripheral [Recovering/Resolving]
  - Oral herpes [Recovering/Resolving]
  - Blood pressure systolic increased [Recovering/Resolving]
  - Steatorrhoea [Recovering/Resolving]
  - Acne [Recovering/Resolving]
  - Diarrhoea [Recovering/Resolving]
  - Myalgia [Recovering/Resolving]
  - Nervousness [Recovering/Resolving]
  - Abdominal pain upper [Recovering/Resolving]
  - Faeces discoloured [Recovering/Resolving]
  - Muscle spasms [Recovering/Resolving]
